FAERS Safety Report 5023411-2 (Version None)
Quarter: 2006Q2

REPORT INFORMATION
  Report Type: 
  Country: None (occurrence: None)
  Receive Date: 20060606
  Receipt Date: 20060522
  Transmission Date: 20061013
  Serious: Yes (Other)
  Sender: FDA-Public Use
  Company Number: VNL_0147_2006

PATIENT
  Age: 66 Year
  Sex: Male

DRUGS (5)
  1. APO-GO [Suspect]
     Indication: PARKINSON'S DISEASE
     Dosage: 96 MG/DAY; INFUSION, SC
     Route: 058
     Dates: start: 20060401, end: 20060412
  2. SINEMET [Concomitant]
  3. SINEMET CR [Concomitant]
  4. SIFROL [Concomitant]
  5. DOMPERIDONE [Concomitant]

REACTIONS (1)
  - OEDEMA PERIPHERAL [None]
